FAERS Safety Report 25443696 (Version 2)
Quarter: 2025Q2

REPORT INFORMATION
  Report Type: Report from Study
  Country: CA (occurrence: CA)
  Receive Date: 20250617
  Receipt Date: 20250624
  Transmission Date: 20250716
  Serious: Yes (Hospitalization)
  Sender: TAKEDA
  Company Number: CA-TAKEDA-2025TUS053975

PATIENT
  Sex: Male

DRUGS (4)
  1. VEDOLIZUMAB [Suspect]
     Active Substance: VEDOLIZUMAB
     Indication: Colitis ulcerative
  2. HUMIRA [Concomitant]
     Active Substance: ADALIMUMAB
  3. PREDNISONE [Concomitant]
     Active Substance: PREDNISONE
  4. IRON [Concomitant]
     Active Substance: IRON
     Indication: Supplementation therapy

REACTIONS (2)
  - Malnutrition [Unknown]
  - Dehydration [Unknown]
